FAERS Safety Report 24783205 (Version 3)
Quarter: 2025Q1

REPORT INFORMATION
  Report Type: Spontaneous
  Country: US (occurrence: US)
  Receive Date: 20241227
  Receipt Date: 20250131
  Transmission Date: 20250409
  Serious: Yes (Other)
  Sender: PFIZER
  Company Number: US-PFIZER INC-PV202400164867

PATIENT
  Age: 75 Year
  Sex: Female
  Weight: 81.633 kg

DRUGS (1)
  1. PREMARIN [Suspect]
     Active Substance: ESTROGENS, CONJUGATED
     Indication: Hysterectomy
     Dosage: UNK, 2X/WEEK
     Dates: start: 2023

REACTIONS (6)
  - Vulvovaginal injury [Unknown]
  - Vulvovaginal discomfort [Unknown]
  - Genital herpes [Unknown]
  - Wrong technique in device usage process [Unknown]
  - Product use in unapproved indication [Unknown]
  - Product dose omission in error [Unknown]

NARRATIVE: CASE EVENT DATE: 20230101
